FAERS Safety Report 4837392-5 (Version None)
Quarter: 2005Q4

REPORT INFORMATION
  Report Type: 
  Country: None (occurrence: None)
  Receive Date: 20051122
  Receipt Date: 20051114
  Transmission Date: 20060501
  Serious: Yes (Disabling)
  Sender: FDA-Public Use
  Company Number: 2005139664

PATIENT
  Age: 51 Year
  Sex: Male
  Weight: 81.6 kg

DRUGS (2)
  1. LYRICA [Suspect]
     Indication: NEURALGIA
     Dosage: 300 MG (150 MG, 2 IN 1 D), ORAL
     Route: 048
     Dates: start: 20041001, end: 20051014
  2. VALORON N (NALOXONE, TILIDINE) [Concomitant]

REACTIONS (3)
  - FAECAL INCONTINENCE [None]
  - MICTURITION URGENCY [None]
  - URINARY INCONTINENCE [None]
